FAERS Safety Report 5104262-7 (Version None)
Quarter: 2006Q3

REPORT INFORMATION
  Report Type: 
  Country: None (occurrence: None)
  Receive Date: 20060914
  Receipt Date: 20060906
  Transmission Date: 20061208
  Serious: Yes (Hospitalization, Other)
  Sender: FDA-Public Use
  Company Number: GB-JNJFOC-20060901089

PATIENT
  Sex: Female
  Weight: 71.2 kg

DRUGS (4)
  1. REMICADE [Suspect]
     Indication: RHEUMATOID ARTHRITIS
     Route: 042
  2. CIMETIDINE [Concomitant]
     Route: 065
  3. SOLPADOL [Concomitant]
     Route: 065
  4. VOLTAREN [Concomitant]
     Route: 065

REACTIONS (2)
  - FAT NECROSIS [None]
  - HAEMATOMA [None]
